FAERS Safety Report 5398751-8 (Version None)
Quarter: 2007Q3

REPORT INFORMATION
  Report Type: 
  Country: None (occurrence: None)
  Receive Date: 20070726
  Receipt Date: 20070326
  Transmission Date: 20080115
  Serious: No
  Sender: FDA-Public Use
  Company Number: US-AMGEN-KDL216657

PATIENT
  Sex: Female

DRUGS (5)
  1. EPOGEN [Suspect]
     Indication: DIALYSIS
     Route: 058
     Dates: start: 20051101
  2. NORVASC [Concomitant]
  3. COZAAR [Concomitant]
  4. COREG [Concomitant]
  5. IRON PREPARATIONS [Concomitant]

REACTIONS (3)
  - BLOOD FOLATE INCREASED [None]
  - THERAPEUTIC RESPONSE DECREASED [None]
  - VITAMIN B12 INCREASED [None]
